FAERS Safety Report 9072900 (Version 1)
Quarter: 2013Q1

REPORT INFORMATION
  Report Type: Report from Study
  Country: ES (occurrence: ES)
  Receive Date: 20130128
  Receipt Date: 20130128
  Transmission Date: 20140127
  Serious: Yes (Hospitalization, Other)
  Sender: FDA-Public Use
  Company Number: ES-ABBOTT-12P-144-1019513-00

PATIENT
  Age: 0 None
  Sex: Male
  Weight: 5.1 kg

DRUGS (2)
  1. SYNAGIS [Suspect]
     Indication: ANTIVIRAL PROPHYLAXIS
     Dates: start: 20121017, end: 20121017
  2. SYNAGIS [Suspect]
     Dates: start: 20121114, end: 20121114

REACTIONS (4)
  - Bronchiolitis [Recovering/Resolving]
  - Dyspnoea [Unknown]
  - Productive cough [Unknown]
  - Cough [Unknown]
